FAERS Safety Report 24269491 (Version 1)
Quarter: 2024Q3

REPORT INFORMATION
  Report Type: Spontaneous
  Country: US (occurrence: None)
  Receive Date: 20240830
  Receipt Date: 20240830
  Transmission Date: 20241016
  Serious: Yes (Hospitalization)
  Sender: Public
  Company Number: None

PATIENT
  Sex: Female
  Weight: 97.1 kg

DRUGS (1)
  1. ARIMIDEX [Suspect]
     Active Substance: ANASTROZOLE

REACTIONS (4)
  - Petechiae [None]
  - Contusion [None]
  - Thermal burn [None]
  - Thrombocytopenia [None]

NARRATIVE: CASE EVENT DATE: 20240821
